FAERS Safety Report 6895344 (Version 2)
Quarter: 2013Q2

REPORT INFORMATION
  Report Type: Spontaneous
  Country: FR (occurrence: FR)
  Receive Date: 20090129
  Receipt Date: 20130628
  Transmission Date: 20140414
  Serious: Yes (Hospitalization)
  Sender: FDA-Public Use
  Company Number: PHHY2009FR01565

PATIENT
  Age: 59 Year
  Sex: Female

DRUGS (2)
  1. LAMISIL [Suspect]
     Indication: ONYCHOMYCOSIS
     Dosage: 250 MG/DAY
     Dates: start: 20080615, end: 20080701
  2. EXFORGE [Suspect]
     Indication: HYPERTENSION
     Dosage: 1 DF/DAY
     Dates: start: 200709

REACTIONS (1)
  - Cutaneous lupus erythematosus [Not Recovered/Not Resolved]
